FAERS Safety Report 22587833 (Version 2)
Quarter: 2023Q4

REPORT INFORMATION
  Report Type: Spontaneous
  Country: US (occurrence: US)
  Receive Date: 20230612
  Receipt Date: 20231023
  Transmission Date: 20240109
  Serious: Yes (Other)
  Sender: FDA-Public Use
  Company Number: US-PFIZER INC-202300214062

PATIENT
  Age: 76 Year
  Sex: Female
  Weight: 65.7 kg

DRUGS (3)
  1. IBRANCE [Suspect]
     Active Substance: PALBOCICLIB
     Indication: Breast cancer female
     Dosage: 125 MG, PROBABLY AT LEAST 8 MONTHS AGO
     Dates: start: 2022
  2. IBRANCE [Suspect]
     Active Substance: PALBOCICLIB
     Indication: Bone cancer metastatic
     Dosage: 100 MG, 1X/DAY, WITH FOOD BY MOUTH
     Route: 048
     Dates: start: 2022
  3. IBUPROFEN [Concomitant]
     Active Substance: IBUPROFEN
     Indication: Pain
     Dosage: UNK (UNKNOWN DOSE; TAKES ONCE IN A WHILE)

REACTIONS (13)
  - Kidney infection [Recovered/Resolved]
  - Urinary tract infection [Unknown]
  - Fungal infection [Unknown]
  - Abdominal pain upper [Not Recovered/Not Resolved]
  - Vomiting [Unknown]
  - Gait inability [Unknown]
  - Impaired quality of life [Unknown]
  - Back pain [Unknown]
  - Feeding disorder [Unknown]
  - Nausea [Unknown]
  - Gastrointestinal disorder [Unknown]
  - Stomatitis [Unknown]
  - Diarrhoea [Unknown]

NARRATIVE: CASE EVENT DATE: 20230301
